FAERS Safety Report 15033833 (Version 1)
Quarter: 2018Q2

REPORT INFORMATION
  Report Type: Spontaneous
  Country: US (occurrence: US)
  Receive Date: 20180619
  Receipt Date: 20180619
  Transmission Date: 20180711
  Serious: No
  Sender: FDA-Public Use
  Company Number: US-ROCHE-2141806

PATIENT
  Sex: Male

DRUGS (1)
  1. OCREVUS [Suspect]
     Active Substance: OCRELIZUMAB
     Indication: RELAPSING-REMITTING MULTIPLE SCLEROSIS
     Dosage: ON 15/JUN/2018, HE RECEIVED HIS SECOND INFUSION.
     Route: 065
     Dates: start: 20180601

REACTIONS (3)
  - Muscle spasms [Unknown]
  - Nasopharyngitis [Unknown]
  - Pharyngeal disorder [Unknown]
